FAERS Safety Report 13061373 (Version 2)
Quarter: 2016Q4

REPORT INFORMATION
  Report Type: Report from Study
  Country: AU (occurrence: AU)
  Receive Date: 20161226
  Receipt Date: 20161228
  Transmission Date: 20170207
  Serious: Yes (Hospitalization)
  Sender: FDA-Public Use
  Company Number: AU-AMGEN-AUSCT2016180107

PATIENT
  Age: 51 Year
  Sex: Female
  Weight: 113 kg

DRUGS (2)
  1. CARFILZOMIB [Suspect]
     Active Substance: CARFILZOMIB
     Indication: PLASMA CELL MYELOMA
     Dosage: 44 MG, PER CHEMO REGIM
     Route: 042
     Dates: start: 20160930
  2. DEXAMETHASONE. [Suspect]
     Active Substance: DEXAMETHASONE
     Indication: PLASMA CELL MYELOMA
     Dosage: 20 MG, PER CHEMO REGIM
     Route: 048
     Dates: start: 20160930

REACTIONS (1)
  - Hyperosmolar hyperglycaemic state [Not Recovered/Not Resolved]

NARRATIVE: CASE EVENT DATE: 20161217
